FAERS Safety Report 15262712 (Version 1)
Quarter: 2018Q4

REPORT INFORMATION
  Report Type: Spontaneous
  Country: ES (occurrence: ES)
  Receive Date: 20180809
  Receipt Date: 20180809
  Transmission Date: 20190204
  Serious: Yes (Other)
  Sender: FDA-Public Use
  Company Number: ES-BRISTOL-MYERS SQUIBB COMPANY-BMS-2018-072624

PATIENT
  Age: 25 Year
  Sex: Male

DRUGS (7)
  1. BRENTUXIMAB [Suspect]
     Active Substance: BRENTUXIMAB VEDOTIN
     Indication: HODGKIN^S DISEASE
     Route: 065
  2. OPDIVO [Suspect]
     Active Substance: NIVOLUMAB
     Indication: HODGKIN^S DISEASE
     Dosage: UNAVAILABLE
     Route: 065
  3. ABVD [Suspect]
     Active Substance: BLEOMYCIN\DACARBAZINE\DOXORUBICIN\VINBLASTINE
     Indication: HODGKIN^S DISEASE
     Dosage: 6 CYCLE
     Route: 065
  4. ESHAP (CISPLATIN) [Suspect]
     Active Substance: CISPLATIN
     Indication: HODGKIN^S DISEASE
     Route: 065
  5. ESHAP (METHYLPREDNISOLONE) [Suspect]
     Active Substance: METHYLPREDNISOLONE
  6. ESHAP (CYTARABINE) [Suspect]
     Active Substance: CYTARABINE
  7. ESHAP (ETOPOSIDE) [Suspect]
     Active Substance: ETOPOSIDE

REACTIONS (1)
  - Lymphoma [Unknown]
